FAERS Safety Report 5416129-5 (Version None)
Quarter: 2007Q3

REPORT INFORMATION
  Report Type: 
  Country: None (occurrence: None)
  Receive Date: 20070718
  Receipt Date: 20070315
  Transmission Date: 20080115
  Serious: Yes (Hospitalization, Other)
  Sender: FDA-Public Use
  Company Number: 2007019983

PATIENT
  Age: 56 Year
  Sex: Male
  Weight: 90.7 kg

DRUGS (2)
  1. CELEBREX [Suspect]
     Indication: ARTHRITIS
     Dosage: (200 MG)
     Dates: start: 20010101
  2. CELEBREX [Suspect]
     Indication: BACK PAIN
     Dosage: (200 MG)
     Dates: start: 20010101

REACTIONS (2)
  - MYOCARDIAL INFARCTION [None]
  - ULCER HAEMORRHAGE [None]
